FAERS Safety Report 4575450-3 (Version None)
Quarter: 2005Q1

REPORT INFORMATION
  Report Type: 
  Country: None (occurrence: None)
  Receive Date: 20050209
  Receipt Date: 20050203
  Transmission Date: 20050727
  Serious: Yes (Other)
  Sender: FDA-Public Use
  Company Number: 200510435FR

PATIENT
  Age: 50 Year
  Sex: Male

DRUGS (2)
  1. ARAVA [Suspect]
     Indication: RHEUMATOID ARTHRITIS
     Route: 048
     Dates: start: 20030101, end: 20040101
  2. UNKNOWN DRUG [Concomitant]

REACTIONS (3)
  - HEARING IMPAIRED [None]
  - HYPOACUSIS [None]
  - TENSION HEADACHE [None]
